FAERS Safety Report 23831364 (Version 5)
Quarter: 2024Q3

REPORT INFORMATION
  Report Type: Spontaneous
  Country: US (occurrence: US)
  Receive Date: 20240508
  Receipt Date: 20240913
  Transmission Date: 20241016
  Serious: No
  Sender: PFIZER
  Company Number: US-PFIZER INC-202400101064

PATIENT
  Age: 1 Year
  Sex: Male

DRUGS (1)
  1. GENOTROPIN [Suspect]
     Active Substance: SOMATROPIN
     Dosage: 0.3MG DAILY
     Route: 058
     Dates: start: 20240501

REACTIONS (3)
  - Constipation [Not Recovered/Not Resolved]
  - Incorrect dose administered [Unknown]
  - Injection site discharge [Not Recovered/Not Resolved]
